FAERS Safety Report 9358236 (Version 1)
Quarter: 2013Q2

REPORT INFORMATION
  Report Type: Spontaneous
  Country: US (occurrence: None)
  Receive Date: 20130619
  Receipt Date: 20130619
  Transmission Date: 20140414
  Serious: Yes (Other)
  Sender: FDA-Public Use
  Company Number: None

PATIENT
  Age: 78 Year
  Sex: Female
  Weight: 113.4 kg

DRUGS (1)
  1. CYMBALTA [Suspect]

REACTIONS (2)
  - Overdose [None]
  - Suicide attempt [None]
